FAERS Safety Report 19684248 (Version 1)
Quarter: 2021Q3

REPORT INFORMATION
  Report Type: Spontaneous
  Country: US (occurrence: US)
  Receive Date: 20210810
  Receipt Date: 20210810
  Transmission Date: 20211014
  Serious: No
  Sender: FDA-Public Use
  Company Number: None

PATIENT
  Age: 26 Year
  Sex: Female
  Weight: 98.4 kg

DRUGS (2)
  1. REGN10987 (IMDEVIMAB) [Suspect]
     Active Substance: IMDEVIMAB
     Indication: COVID-19 TREATMENT
     Dosage: ?          OTHER FREQUENCY:ONE TIME;?
     Route: 042
     Dates: start: 20210806, end: 20210806
  2. REGN10933 (CASIRIVIMAB) [Suspect]
     Active Substance: CASIRIVIMAB
     Indication: COVID-19 TREATMENT
     Dosage: ?          OTHER FREQUENCY:ONE TIME;?
     Route: 042
     Dates: start: 20210806, end: 20210806

REACTIONS (3)
  - Wrong technique in product usage process [None]
  - Incorrect dose administered [None]
  - Product preparation error [None]

NARRATIVE: CASE EVENT DATE: 20210806
